FAERS Safety Report 5097845-4 (Version None)
Quarter: 2006Q3

REPORT INFORMATION
  Report Type: 
  Country: None (occurrence: None)
  Receive Date: 20060905
  Receipt Date: 20060823
  Transmission Date: 20061208
  Serious: Yes (Death, Hospitalization, Other)
  Sender: FDA-Public Use
  Company Number: ENTC2006-0242

PATIENT
  Age: 87 Year
  Sex: Female

DRUGS (6)
  1. STALEVO 100 [Suspect]
     Indication: PARKINSON'S DISEASE
     Dosage: ORAL 2-3 MONTHS AGO
     Route: 048
  2. REMERON [Concomitant]
  3. OMEPRAZOLE [Concomitant]
  4. HIDRIUM [Concomitant]
  5. ASCORBIC ACID [Concomitant]
  6. GINKGO BILOBA [Concomitant]

REACTIONS (10)
  - ABASIA [None]
  - BLOOD CALCIUM DECREASED [None]
  - BLOOD POTASSIUM DECREASED [None]
  - CONDITION AGGRAVATED [None]
  - DYSPHAGIA [None]
  - FLUID RETENTION [None]
  - MULTI-ORGAN FAILURE [None]
  - OEDEMA [None]
  - ORAL INTAKE REDUCED [None]
  - URINARY TRACT INFECTION [None]
